FAERS Safety Report 4933889-8 (Version None)
Quarter: 2006Q1

REPORT INFORMATION
  Report Type: 
  Country: None (occurrence: None)
  Receive Date: 20060307
  Receipt Date: 20060224
  Transmission Date: 20060701
  Serious: Yes (Death, Life-Threatening, Hospitalization)
  Sender: FDA-Public Use
  Company Number: US-JNJFOC-20060204793

PATIENT
  Sex: Male

DRUGS (8)
  1. INFLIXIMAB [Suspect]
     Indication: RHEUMATOID ARTHRITIS
     Route: 042
  2. METHOTREXATE [Suspect]
     Indication: RHEUMATOID ARTHRITIS
     Route: 030
  3. DEFLAZACORT [Concomitant]
  4. FOLIC ACID [Concomitant]
  5. MELOXICAM [Concomitant]
  6. CALCIUM GLUCONATE [Concomitant]
  7. OMEPRAZOLE [Concomitant]
  8. METOCLOPRAMIDE HCL [Concomitant]

REACTIONS (2)
  - PERITONEAL TUBERCULOSIS [None]
  - SEPTIC SHOCK [None]
